FAERS Safety Report 6122012-2 (Version None)
Quarter: 2009Q1

REPORT INFORMATION
  Report Type: 
  Country: None (occurrence: None)
  Receive Date: 20090316
  Receipt Date: 20090304
  Transmission Date: 20090719
  Serious: Yes (Hospitalization)
  Sender: FDA-Public Use
  Company Number: 2008AL005289

PATIENT
  Age: 60 Year
  Sex: Female
  Weight: 61.2356 kg

DRUGS (18)
  1. DIGOXIN [Suspect]
     Indication: CARDIAC FAILURE CONGESTIVE
     Dosage: 0.25MG, DAILY, PO; 0.125MG, DAILY, PO
     Route: 048
     Dates: start: 20070101, end: 20080101
  2. DIGOXIN [Suspect]
     Indication: CARDIAC FAILURE CONGESTIVE
     Dosage: 0.25MG, DAILY, PO; 0.125MG, DAILY, PO
     Route: 048
     Dates: start: 20080730
  3. GLUCOVANCE [Concomitant]
  4. ACTOS [Concomitant]
  5. PREVACID [Concomitant]
  6. ISORDIL [Concomitant]
  7. METFORMIN [Concomitant]
  8. POTASSIUM CHLORIDE [Concomitant]
  9. ADVAIR HFA [Concomitant]
  10. XOPENEX [Concomitant]
  11. SPIRIVA [Concomitant]
  12. COREG [Concomitant]
  13. LIPITOR [Concomitant]
  14. ASPIRIN [Concomitant]
  15. KLOR-CON [Concomitant]
  16. ALDACTONE [Concomitant]
  17. COUMADIN [Concomitant]
  18. MAGNESIUM SULFATE [Concomitant]

REACTIONS (22)
  - AORTIC STENOSIS [None]
  - ARRHYTHMIA [None]
  - ASTHENIA [None]
  - ATRIOVENTRICULAR BLOCK FIRST DEGREE [None]
  - CARDIAC MURMUR [None]
  - CARDIOMEGALY [None]
  - DIZZINESS POSTURAL [None]
  - DYSPNOEA EXERTIONAL [None]
  - ELECTROCARDIOGRAM POOR R-WAVE PROGRESSION [None]
  - ELECTROCARDIOGRAM T WAVE AMPLITUDE DECREASED [None]
  - FATIGUE [None]
  - FLUID RETENTION [None]
  - HYPERGLYCAEMIA [None]
  - HYPONATRAEMIA [None]
  - LEFT VENTRICULAR DYSFUNCTION [None]
  - MITRAL VALVE INCOMPETENCE [None]
  - OEDEMA PERIPHERAL [None]
  - PAIN IN EXTREMITY [None]
  - PRESYNCOPE [None]
  - RESPIRATORY DISTRESS [None]
  - VENTRICULAR TACHYCARDIA [None]
  - WEIGHT INCREASED [None]
